FAERS Safety Report 8188563-4 (Version None)
Quarter: 2012Q1

REPORT INFORMATION
  Report Type: 
  Country: None (occurrence: None)
  Receive Date: 20120306
  Receipt Date: 20120302
  Transmission Date: 20120608
  Serious: Yes (Other)
  Sender: FDA-Public Use
  Company Number: PHEH2012US005061

PATIENT
  Sex: Female

DRUGS (4)
  1. AVONEX [Concomitant]
  2. GILENYA [Suspect]
     Indication: MULTIPLE SCLEROSIS
     Dosage: 0.5 MG, QD
     Route: 048
     Dates: start: 20111216
  3. CLARITIN [Concomitant]
  4. GABAPENTIN [Concomitant]

REACTIONS (3)
  - ABASIA [None]
  - BACK PAIN [None]
  - PAIN IN EXTREMITY [None]
